FAERS Safety Report 6459258-X (Version None)
Quarter: 2009Q4

REPORT INFORMATION
  Report Type: 
  Country: None (occurrence: None)
  Receive Date: 20091127
  Receipt Date: 20090805
  Transmission Date: 20100525
  Serious: No
  Sender: FDA-Public Use
  Company Number: US-AMGEN-KDL184502

PATIENT
  Sex: Female
  Weight: 72.6 kg

DRUGS (9)
  1. ENBREL [Suspect]
     Indication: PSORIASIS
     Dates: start: 20071115, end: 20090804
  2. MAXZIDE [Concomitant]
  3. PAXIL [Concomitant]
  4. ASPIRIN [Concomitant]
  5. VITAMINS [Concomitant]
  6. ATIVAN [Concomitant]
  7. PRILOSEC [Concomitant]
  8. ADDERALL 10 [Concomitant]
  9. ORTHO TRI-CYCLEN (ORTHO-MCNEIL) [Concomitant]

REACTIONS (2)
  - HERPES ZOSTER [None]
  - URINARY TRACT INFECTION [None]
